FAERS Safety Report 4323659-6 (Version None)
Quarter: 2004Q1

REPORT INFORMATION
  Report Type: 
  Country: None (occurrence: None)
  Receive Date: 20040323
  Receipt Date: 20040312
  Transmission Date: 20041129
  Serious: Yes (Hospitalization)
  Sender: FDA-Public Use
  Company Number: 2004-DE-01220GD (0)

PATIENT
  Age: 16 Year
  Sex: Female

DRUGS (1)
  1. ACETAMINOPHEN AND CODEINE PHOSPHATE [Suspect]

REACTIONS (6)
  - ANXIETY [None]
  - DRUG DEPENDENCE [None]
  - INTENTIONAL MISUSE [None]
  - MEDICATION ERROR [None]
  - SUICIDE ATTEMPT [None]
  - THEFT [None]
